FAERS Safety Report 9861474 (Version 2)
Quarter: 2014Q1

REPORT INFORMATION
  Report Type: Spontaneous
  Country: HU (occurrence: HU)
  Receive Date: 20140203
  Receipt Date: 20140227
  Transmission Date: 20141002
  Serious: Yes (Hospitalization)
  Sender: FDA-Public Use
  Company Number: HU-BIOGENIDEC-2014BI010203

PATIENT
  Sex: Female

DRUGS (4)
  1. TYSABRI [Suspect]
     Indication: MULTIPLE SCLEROSIS
     Route: 042
     Dates: start: 20130314, end: 20131219
  2. SERTRALINE [Concomitant]
  3. XANAX [Concomitant]
  4. TRITACE [Concomitant]

REACTIONS (3)
  - Paraparesis [Unknown]
  - Facial paresis [Unknown]
  - Drug ineffective [Unknown]
